FAERS Safety Report 17387509 (Version 1)
Quarter: 2020Q1

REPORT INFORMATION
  Report Type: Spontaneous
  Country: US (occurrence: US)
  Receive Date: 20200122
  Receipt Date: 20200122
  Transmission Date: 20200409
  Serious: Yes (Hospitalization)
  Sender: FDA-Public Use
  Company Number: None

PATIENT
  Age: 47 Year
  Sex: Female
  Weight: 126 kg

DRUGS (1)
  1. ASPIRIN. [Suspect]
     Active Substance: ASPIRIN
     Dates: end: 20200107

REACTIONS (3)
  - Pleural effusion [None]
  - Pneumonia [None]
  - Influenza [None]

NARRATIVE: CASE EVENT DATE: 20200107
